FAERS Safety Report 23194878 (Version 4)
Quarter: 2023Q4

REPORT INFORMATION
  Report Type: Report from Study
  Country: US (occurrence: US)
  Receive Date: 20231117
  Receipt Date: 20231211
  Transmission Date: 20240110
  Serious: Yes (Death, Hospitalization)
  Sender: FDA-Public Use
  Company Number: US-002147023-NVSC2023US244455

PATIENT
  Age: 1 Year
  Sex: Male
  Weight: 14.5 kg

DRUGS (9)
  1. ENTRESTO [Suspect]
     Active Substance: SACUBITRIL\VALSARTAN
     Indication: Cardiac failure
     Dosage: 34.4 MG, BID
     Route: 065
     Dates: start: 20221223
  2. ENTRESTO [Suspect]
     Active Substance: SACUBITRIL\VALSARTAN
     Dosage: 37.2 MG, BID
     Route: 065
     Dates: start: 20230207
  3. ENTRESTO [Suspect]
     Active Substance: SACUBITRIL\VALSARTAN
     Dosage: 40 MG, BID (WEIGHT BASED DOSING, TABLETS WERE COMPOUNDED BY LOCAL PHARMACY)
     Route: 048
     Dates: start: 20230214
  4. ENTRESTO [Suspect]
     Active Substance: SACUBITRIL\VALSARTAN
     Dosage: 40 MG, BID
     Route: 065
     Dates: start: 20230404
  5. CARVEDILOL [Concomitant]
     Active Substance: CARVEDILOL
     Indication: Product used for unknown indication
     Dosage: UNK
     Route: 065
  6. ALDACTONE [Concomitant]
     Active Substance: SPIRONOLACTONE
     Indication: Product used for unknown indication
     Dosage: UNK
     Route: 065
  7. FUROSEMIDE [Concomitant]
     Active Substance: FUROSEMIDE
     Indication: Product used for unknown indication
     Dosage: UNK
     Route: 065
  8. HYDROCHLOROTHIAZIDE [Concomitant]
     Active Substance: HYDROCHLOROTHIAZIDE
     Indication: Product used for unknown indication
     Dosage: UNK
     Route: 065
  9. MILRINONE [Concomitant]
     Active Substance: MILRINONE
     Indication: Product used for unknown indication
     Dosage: UNK
     Route: 041

REACTIONS (4)
  - Cardiac failure [Fatal]
  - Disease progression [Fatal]
  - Incorrect dose administered [Unknown]
  - Wrong technique in product usage process [Unknown]

NARRATIVE: CASE EVENT DATE: 20221223
